FAERS Safety Report 9002480 (Version 1)
Quarter: 2013Q1

REPORT INFORMATION
  Report Type: Spontaneous
  Country: CH (occurrence: CH)
  Receive Date: 20130107
  Receipt Date: 20130107
  Transmission Date: 20140127
  Serious: Yes (Other)
  Sender: FDA-Public Use
  Company Number: CH-PFIZER INC-2012323090

PATIENT
  Age: 38 Year
  Sex: Female
  Weight: 60 kg

DRUGS (5)
  1. RELPAX [Suspect]
     Indication: MIGRAINE
     Dosage: 40 MG, 1X/DAY MAXIMAL 3 DAYS IN A ROW
     Route: 048
     Dates: start: 2009
  2. XANAX [Concomitant]
     Dosage: 2 MG, 1-2X/DAY
     Route: 048
     Dates: start: 2009
  3. FLUANXOL [Concomitant]
     Dosage: 0.5 MG, 1X 1-2 TABLET/DAY
     Route: 048
     Dates: start: 2010
  4. SPORANOX G [Concomitant]
     Indication: VULVOVAGINAL MYCOTIC INFECTION
     Dosage: 100 MG, 2X/DAY FOR TWO DAYS
     Route: 048
     Dates: start: 2010
  5. FERRUM HAUSMANN [Concomitant]
     Indication: IRON DEFICIENCY
     Dosage: 100 MG, 1X/DAY
     Route: 048
     Dates: start: 201209

REACTIONS (2)
  - Fatigue [Recovered/Resolved]
  - Acoustic shock [Recovered/Resolved]
